FAERS Safety Report 18283571 (Version 3)
Quarter: 2020Q4

REPORT INFORMATION
  Report Type: Spontaneous
  Country: US (occurrence: US)
  Receive Date: 20200918
  Receipt Date: 20201112
  Transmission Date: 20210113
  Serious: Yes (Other)
  Sender: FDA-Public Use
  Company Number: US-BAUSCH-BL-2020-026374

PATIENT
  Age: 25 Year
  Sex: Female
  Weight: 52.21 kg

DRUGS (2)
  1. UCERIS [Suspect]
     Active Substance: BUDESONIDE
     Dosage: ONCE AT NIGHT AND ONCE DURING THE DAY, USED FOR ABOUT A WEEK?START DATE: 23/AUG/2020 OR 24/AUG/2020.
     Route: 054
     Dates: start: 202008, end: 202008
  2. UCERIS [Suspect]
     Active Substance: BUDESONIDE
     Indication: COLITIS ULCERATIVE
     Route: 054
     Dates: start: 20200821, end: 202008

REACTIONS (4)
  - Inappropriate schedule of product administration [Unknown]
  - Product use issue [Unknown]
  - Product communication issue [Unknown]
  - Rectal haemorrhage [Recovered/Resolved]

NARRATIVE: CASE EVENT DATE: 202008
